FAERS Safety Report 7153512-4 (Version None)
Quarter: 2010Q4

REPORT INFORMATION
  Report Type: 
  Country: None (occurrence: None)
  Receive Date: 20101213
  Receipt Date: 20101206
  Transmission Date: 20110411
  Serious: Yes (Congenital Anomaly, Other)
  Sender: FDA-Public Use
  Company Number: B0688616A

PATIENT
  Age: 2 Month
  Sex: Male

DRUGS (10)
  1. LAMIVUDINE [Suspect]
     Indication: HIV INFECTION
  2. AMPICILLIN [Suspect]
  3. PARACETAMOL [Suspect]
  4. NEVIRAPINE [Suspect]
     Indication: HIV INFECTION
  5. STAVUDINE [Suspect]
     Indication: HIV INFECTION
  6. CHLOROQUINE PHOSPHATE [Suspect]
  7. UNSPECIFIED MEDICATION [Suspect]
  8. LAMIVUDINE [Concomitant]
     Route: 065
  9. STAVUDINE [Concomitant]
     Route: 065
  10. NEVIRAPINE [Concomitant]
     Route: 065

REACTIONS (10)
  - ANAL ATRESIA [None]
  - AURICULAR SWELLING [None]
  - CONGENITAL EYE DISORDER [None]
  - EAR MALFORMATION [None]
  - EYE SWELLING [None]
  - ILL-DEFINED DISORDER [None]
  - LETHARGY [None]
  - LOW SET EARS [None]
  - NOSE DEFORMITY [None]
  - OCULAR NEOPLASM [None]
